FAERS Safety Report 18967850 (Version 1)
Quarter: 2021Q1

REPORT INFORMATION
  Report Type: Spontaneous
  Country: US (occurrence: US)
  Receive Date: 20210303
  Receipt Date: 20210303
  Transmission Date: 20210420
  Serious: Yes (Hospitalization)
  Sender: FDA-Public Use
  Company Number: None

PATIENT
  Age: 87 Year
  Sex: Female
  Weight: 70.31 kg

DRUGS (16)
  1. SERTRALINE HCL [Concomitant]
     Active Substance: SERTRALINE HYDROCHLORIDE
  2. TIMOLOL MALEATE 0.5% OPH SOLN. [Concomitant]
  3. FAMOTIDINE. [Concomitant]
     Active Substance: FAMOTIDINE
  4. METOPROLOL TARTRATE. [Concomitant]
     Active Substance: METOPROLOL TARTRATE
  5. DOXYCYCLINE HYCLATE. [Concomitant]
     Active Substance: DOXYCYCLINE HYCLATE
  6. INSULIN ASPART [Concomitant]
     Active Substance: INSULIN ASPART
  7. LACTOBACILLUS/BIFIDOBACTERIUM [Concomitant]
  8. BAMLANIVIMAB 700MG [Suspect]
     Active Substance: BAMLANIVIMAB
     Indication: ARTHRITIS REACTIVE
     Route: 042
     Dates: start: 20210223, end: 20210223
  9. ATORVASTATIN CALCIUM. [Concomitant]
     Active Substance: ATORVASTATIN CALCIUM
  10. LOVOTHYROXINE SODIUM [Concomitant]
  11. GABAPENTIN. [Concomitant]
     Active Substance: GABAPENTIN
  12. ALBUTEROL SULFATE INHALER [Concomitant]
     Active Substance: ALBUTEROL SULFATE
  13. CHOLECALCIFEROL [Concomitant]
     Active Substance: CHOLECALCIFEROL
  14. INSULIN DETEMIR [Concomitant]
     Active Substance: INSULIN DETEMIR
  15. GUAIFENESIN/DEMTROMETHORPHAN [Concomitant]
  16. ONDASTERON HCL [Concomitant]

REACTIONS (2)
  - Oxygen saturation decreased [None]
  - Asthenia [None]

NARRATIVE: CASE EVENT DATE: 20210224
